FAERS Safety Report 18430855 (Version 1)
Quarter: 2020Q4

REPORT INFORMATION
  Report Type: Spontaneous
  Country: US (occurrence: US)
  Receive Date: 20201027
  Receipt Date: 20201027
  Transmission Date: 20210114
  Serious: Yes (Death, Hospitalization)
  Sender: FDA-Public Use
  Company Number: None

PATIENT
  Age: 80 Year
  Sex: Male

DRUGS (2)
  1. ENOXAPARIN (ENOXAPARIN 40MG/0.4ML INJ) [Suspect]
     Active Substance: ENOXAPARIN
     Indication: COVID-19
  2. ENOXAPARIN (ENOXAPARIN 40MG/0.4ML INJ) [Suspect]
     Active Substance: ENOXAPARIN
     Indication: ATRIAL FIBRILLATION
     Route: 058
     Dates: start: 20200902, end: 20200907

REACTIONS (7)
  - Muscle haemorrhage [None]
  - Shock haemorrhagic [None]
  - Retroperitoneal haemorrhage [None]
  - Multiple organ dysfunction syndrome [None]
  - Cardiac arrest [None]
  - Anaemia [None]
  - Critical illness [None]

NARRATIVE: CASE EVENT DATE: 20200907
